FAERS Safety Report 5065885-7 (Version None)
Quarter: 2006Q3

REPORT INFORMATION
  Report Type: 
  Country: None (occurrence: None)
  Receive Date: 20060731
  Receipt Date: 20060720
  Transmission Date: 20061208
  Serious: Yes (Hospitalization)
  Sender: FDA-Public Use
  Company Number: ZA-BRISTOL-MYERS SQUIBB COMPANY-13448253

PATIENT
  Age: 50 Year
  Sex: Male

DRUGS (6)
  1. ATAZANAVIR [Suspect]
     Indication: HIV INFECTION
     Route: 048
     Dates: start: 20000301
  2. STAVUDINE [Suspect]
     Indication: HIV INFECTION
     Route: 048
     Dates: start: 20000301
  3. DIDANOSINE [Suspect]
     Indication: HIV INFECTION
     Route: 048
     Dates: start: 20030503
  4. MYPRODOL [Concomitant]
     Dates: start: 20040331
  5. TRYPTANOL [Concomitant]
     Dates: start: 20060424
  6. PHENERGAN HCL [Concomitant]
     Dates: start: 20050525

REACTIONS (1)
  - NEPHROLITHIASIS [None]
